FAERS Safety Report 24262877 (Version 1)
Quarter: 2024Q3

REPORT INFORMATION
  Report Type: Spontaneous
  Country: GB (occurrence: GB)
  Receive Date: 20240829
  Receipt Date: 20240829
  Transmission Date: 20241016
  Serious: Yes (Life-Threatening, Other)
  Sender: AZURITY PHARMACEUTICALS
  Company Number: GB-APCER-AZR202407-000436

PATIENT
  Age: 60 Year
  Weight: 75 kg

DRUGS (4)
  1. TRIPTODUR [Suspect]
     Active Substance: TRIPTORELIN
     Indication: Prostate cancer
     Dosage: 1125 MICROGRAM, UNKNOWN
     Route: 065
     Dates: start: 20240131, end: 20240424
  2. TAMSULOSIN [Concomitant]
     Active Substance: TAMSULOSIN
     Indication: Radiation injury
     Dosage: UNK
     Route: 065
  3. EDOXABAN [Concomitant]
     Active Substance: EDOXABAN
     Indication: Acute coronary syndrome
     Dosage: 60 MILLIGRAM, QD
     Route: 065
  4. EDOXABAN [Concomitant]
     Active Substance: EDOXABAN
     Indication: Cerebrovascular accident

REACTIONS (2)
  - Haemorrhage intracranial [Unknown]
  - Embolic stroke [Unknown]

NARRATIVE: CASE EVENT DATE: 20240620
